FAERS Safety Report 14698843 (Version 5)
Quarter: 2018Q3

REPORT INFORMATION
  Report Type: Spontaneous
  Country: US (occurrence: US)
  Receive Date: 20180330
  Receipt Date: 20180827
  Transmission Date: 20181010
  Serious: Yes (Hospitalization, Other)
  Sender: FDA-Public Use
  Company Number: US-BRISTOL-MYERS SQUIBB COMPANY-BMS-2018-025920

PATIENT
  Sex: Male
  Weight: 91.16 kg

DRUGS (2)
  1. ORENCIA [Suspect]
     Active Substance: ABATACEPT
     Indication: PSORIATIC ARTHROPATHY
     Dosage: 125 MG/ML, QWK
     Route: 058
     Dates: start: 201801
  2. PRALUENT [Concomitant]
     Active Substance: ALIROCUMAB
     Indication: PRODUCT USED FOR UNKNOWN INDICATION
     Dosage: UNK UNK, QD
     Route: 065
     Dates: start: 201806

REACTIONS (9)
  - Stomatitis [Unknown]
  - Malaise [Unknown]
  - Tongue ulceration [Unknown]
  - Influenza [Unknown]
  - Aphthous ulcer [Recovering/Resolving]
  - Oropharyngeal pain [Unknown]
  - Device malfunction [Unknown]
  - Myocardial infarction [Unknown]
  - Withdrawal syndrome [Unknown]
